FAERS Safety Report 9279053 (Version 1)
Quarter: 2013Q2

REPORT INFORMATION
  Report Type: Other
  Country: JP (occurrence: JP)
  Receive Date: 20130508
  Receipt Date: 20130508
  Transmission Date: 20140414
  Serious: Yes (Death, Hospitalization)
  Sender: FDA-Public Use
  Company Number: JP-ACTELION-A-CH2013-82561

PATIENT
  Age: 78 Year
  Sex: Female
  Weight: 43.4 kg

DRUGS (3)
  1. TRACLEER [Suspect]
     Indication: PULMONARY ARTERIAL HYPERTENSION
     Dosage: UNK
     Route: 048
  2. BERAPROST [Concomitant]
  3. PREDNISOLONE [Concomitant]

REACTIONS (9)
  - Cardiac failure [Fatal]
  - Endocarditis bacterial [Fatal]
  - Sepsis [Unknown]
  - Pyrexia [Fatal]
  - C-reactive protein increased [Fatal]
  - Dyspnoea [Fatal]
  - Interleukin level increased [Fatal]
  - Pulmonary arterial hypertension [Unknown]
  - Disease progression [Unknown]
